FAERS Safety Report 10718031 (Version 1)
Quarter: 2015Q1

REPORT INFORMATION
  Report Type: Spontaneous
  Country: HR (occurrence: HR)
  Receive Date: 20150117
  Receipt Date: 20150117
  Transmission Date: 20150721
  Serious: Yes (Death, Other)
  Sender: FDA-Public Use
  Company Number: HR-ABBVIE-15K-216-1332894-00

PATIENT
  Sex: Male

DRUGS (6)
  1. HUMIRA [Suspect]
     Active Substance: ADALIMUMAB
     Indication: SPONDYLITIS
     Route: 065
     Dates: start: 20100702, end: 20150109
  2. MARIVARIN [Concomitant]
     Indication: PRODUCT USED FOR UNKNOWN INDICATION
  3. TULIP [Concomitant]
     Active Substance: ATORVASTATIN
     Indication: PRODUCT USED FOR UNKNOWN INDICATION
  4. CARDIOL [Concomitant]
     Indication: PRODUCT USED FOR UNKNOWN INDICATION
  5. TRITACE [Concomitant]
     Active Substance: RAMIPRIL
     Indication: PRODUCT USED FOR UNKNOWN INDICATION
  6. ARCOXIA [Concomitant]
     Active Substance: ETORICOXIB
     Indication: PRODUCT USED FOR UNKNOWN INDICATION

REACTIONS (5)
  - Leukocyte antigen B-27 positive [Fatal]
  - Umbilical hernia [Fatal]
  - Coronary artery bypass [Fatal]
  - Spinal pain [Fatal]
  - Arthralgia [Fatal]
